FAERS Safety Report 5953272-6 (Version None)
Quarter: 2008Q4

REPORT INFORMATION
  Report Type: 
  Country: None (occurrence: None)
  Receive Date: 20081114
  Receipt Date: 20081107
  Transmission Date: 20090506
  Serious: Yes (Other)
  Sender: FDA-Public Use
  Company Number: PHHY2008JP27296

PATIENT
  Sex: Female

DRUGS (2)
  1. DIOVAN [Suspect]
     Indication: HYPERTENSION
     Dosage: 40 MG, QD
     Route: 048
     Dates: start: 20081008, end: 20081015
  2. ZITHROMAX [Suspect]
     Dosage: UNK
     Route: 048
     Dates: start: 20081010, end: 20081012

REACTIONS (2)
  - POST PROCEDURAL HAEMORRHAGE [None]
  - TOOTH EXTRACTION [None]
